FAERS Safety Report 10741469 (Version 3)
Quarter: 2015Q2

REPORT INFORMATION
  Report Type: Spontaneous
  Country: US (occurrence: None)
  Receive Date: 20150123
  Receipt Date: 20150611
  Transmission Date: 20150821
  Serious: Yes (Life-Threatening, Hospitalization, Other)
  Sender: FDA-Public Use
  Company Number: ADR-2015-00153

PATIENT
  Age: 63 Year
  Sex: Male

DRUGS (3)
  1. BUPIVACAINE INTRATHECAL [Suspect]
     Active Substance: BUPIVACAINE
     Indication: PAIN
  2. COMPOUNDED BACLOFEN [Suspect]
     Active Substance: BACLOFEN
     Indication: PAIN
  3. DILAUDID [Suspect]
     Active Substance: HYDROMORPHONE HYDROCHLORIDE

REACTIONS (7)
  - Malaise [None]
  - Overdose [None]
  - Brain injury [None]
  - Device malfunction [None]
  - Hyporesponsive to stimuli [None]
  - Muscle rigidity [None]
  - Incorrect dose administered [None]

NARRATIVE: CASE EVENT DATE: 20141218
